FAERS Safety Report 25975547 (Version 1)
Quarter: 2025Q4

REPORT INFORMATION
  Report Type: Spontaneous
  Country: US (occurrence: US)
  Receive Date: 20251029
  Receipt Date: 20251029
  Transmission Date: 20260118
  Serious: Yes (Other)
  Sender: SANDOZ
  Company Number: US-SANDOZ-SDZ2025US078632

PATIENT
  Age: 48 Year
  Sex: Female

DRUGS (1)
  1. HYRIMOZ [Suspect]
     Active Substance: ADALIMUMAB-ADAZ
     Indication: Rheumatoid arthritis
     Dosage: 40 MG, Q2W (STRENGTH: 40MG/0.4ML)
     Route: 058

REACTIONS (3)
  - Spinal laminectomy [Unknown]
  - Spinal fusion surgery [Unknown]
  - Pain [Unknown]

NARRATIVE: CASE EVENT DATE: 20250923
